FAERS Safety Report 20029417 (Version 2)
Quarter: 2024Q2

REPORT INFORMATION
  Report Type: Spontaneous
  Country: US (occurrence: US)
  Receive Date: 20211103
  Receipt Date: 20240613
  Transmission Date: 20240716
  Serious: No
  Sender: FDA-Public Use
  Company Number: US-PFIZER INC-202101466659

PATIENT
  Age: 66 Year
  Sex: Male

DRUGS (2)
  1. INLYTA [Suspect]
     Active Substance: AXITINIB
     Dosage: 5 MG
     Dates: start: 20210913
  2. INLYTA [Suspect]
     Active Substance: AXITINIB
     Dosage: 3 TABLETS (3MG) TWICE A DAY

REACTIONS (3)
  - Hypertension [Unknown]
  - Dry skin [Unknown]
  - Abdominal discomfort [Unknown]
